FAERS Safety Report 8144914-8 (Version None)
Quarter: 2012Q1

REPORT INFORMATION
  Report Type: 
  Country: None (occurrence: None)
  Receive Date: 20120217
  Receipt Date: 20120206
  Transmission Date: 20120608
  Serious: Yes (Hospitalization, Disabling)
  Sender: FDA-Public Use
  Company Number: US-MERCK-1108USA02437

PATIENT
  Age: 73 Year
  Sex: Female

DRUGS (4)
  1. FOSAMAX [Suspect]
     Indication: OSTEOPOROSIS
     Route: 048
     Dates: start: 20000701, end: 20020901
  2. FOSAMAX [Suspect]
     Route: 048
     Dates: start: 20021001, end: 20070701
  3. FOSAMAX [Suspect]
     Route: 048
     Dates: start: 20021001, end: 20070701
  4. FOSAMAX [Suspect]
     Indication: OSTEOPOROSIS PROPHYLAXIS
     Route: 048
     Dates: start: 20000701, end: 20020901

REACTIONS (15)
  - OSTEOARTHRITIS [None]
  - PULMONARY HYPERTENSION [None]
  - LEFT VENTRICULAR HYPERTROPHY [None]
  - GLAUCOMA [None]
  - FALL [None]
  - LOW TURNOVER OSTEOPATHY [None]
  - AORTIC VALVE INCOMPETENCE [None]
  - TRICUSPID VALVE INCOMPETENCE [None]
  - DIVERTICULUM [None]
  - FEMUR FRACTURE [None]
  - PUBIS FRACTURE [None]
  - HAEMORRHOIDS [None]
  - HIATUS HERNIA [None]
  - CATARACT [None]
  - MITRAL VALVE INCOMPETENCE [None]
